FAERS Safety Report 5892267-8 (Version None)
Quarter: 2008Q3

REPORT INFORMATION
  Report Type: 
  Country: None (occurrence: None)
  Receive Date: 20080919
  Receipt Date: 20080910
  Transmission Date: 20090109
  Serious: Yes (Other)
  Sender: FDA-Public Use
  Company Number: APP200800326

PATIENT
  Age: 51 Year
  Sex: Male
  Weight: 99.7913 kg

DRUGS (11)
  1. BUPIVACAINE HYDROCHLORIDE AND EPINEPHRINE [Suspect]
     Indication: MUSCULOSKELETAL PAIN
     Dosage: 270 ML, 0.5% CONTINUOUS VIA PAIN PUMP; 200 ML, 0.25% CONTINUOUS VIA PAIN PUMP
     Dates: start: 20040714, end: 20040716
  2. BUPIVACAINE HYDROCHLORIDE AND EPINEPHRINE [Suspect]
     Indication: MUSCULOSKELETAL PAIN
     Dosage: 270 ML, 0.5% CONTINUOUS VIA PAIN PUMP; 200 ML, 0.25% CONTINUOUS VIA PAIN PUMP
     Dates: start: 20040716
  3. XYLOCAINE [Suspect]
     Indication: MUSCULOSKELETAL PAIN
     Dosage: 270 ML, 1% CONTINUOUS VIA PAIN PUMP
     Dates: start: 20050420
  4. XYLOCAINE W/ EPINEPHRENE [Suspect]
     Dosage: 30 ML, 1% PREMEDICATION INTO THE RIGHT SHOULDER; 30 ML, 1% PREMEDICATION INTO THE RIGHT SHOULDER
     Dates: start: 20040714, end: 20040714
  5. XYLOCAINE W/ EPINEPHRENE [Suspect]
     Dosage: 30 ML, 1% PREMEDICATION INTO THE RIGHT SHOULDER; 30 ML, 1% PREMEDICATION INTO THE RIGHT SHOULDER
     Dates: start: 20050420, end: 20050420
  6. DONJOY PAINBUSTER PAIN PUMP [Suspect]
     Indication: MUSCULOSKELETAL PAIN
     Dates: start: 20040714
  7. DONJOY PAINBUSTER PAIN PUMP [Suspect]
     Indication: MUSCULOSKELETAL PAIN
     Dates: start: 20050420
  8. PERCOCET [Concomitant]
  9. VICODIN [Concomitant]
  10. LACTATED RINGERS (FLEBOBAG RING LACT) [Concomitant]
  11. MS CONTIN [Concomitant]

REACTIONS (4)
  - CHONDROLYSIS [None]
  - CHONDROMALACIA [None]
  - PERIARTHRITIS [None]
  - SYNOVITIS [None]
